FAERS Safety Report 6922728-1 (Version None)
Quarter: 2010Q3

REPORT INFORMATION
  Report Type: 
  Country: None (occurrence: None)
  Receive Date: 20100813
  Receipt Date: 20100806
  Transmission Date: 20110219
  Serious: Yes (Death, Hospitalization, Other)
  Sender: FDA-Public Use
  Company Number: US-BAXTER-2010BH015647

PATIENT
  Age: 36 Year
  Sex: Male

DRUGS (1)
  1. RECOMBINATE [Suspect]
     Indication: HAEMORRHAGE
     Route: 065

REACTIONS (1)
  - PNEUMOCYSTIS JIROVECI PNEUMONIA [None]
